FAERS Safety Report 4799941-5 (Version None)
Quarter: 2005Q4

REPORT INFORMATION
  Report Type: 
  Country: None (occurrence: None)
  Receive Date: 20051013
  Receipt Date: 20050714
  Transmission Date: 20060501
  Serious: Yes (Death)
  Sender: FDA-Public Use
  Company Number: TR 2005 0006

PATIENT
  Age: 12 Year
  Sex: Female

DRUGS (3)
  1. OXILAN    (IOXILAN) [Suspect]
     Indication: CATHETERISATION CARDIAC
     Dosage: 40 ML PER DAY, INTRAVENOUS
     Route: 042
     Dates: start: 20050624, end: 20050624
  2. KETAMINE [Concomitant]
  3. MIDAZOLAM [Concomitant]

REACTIONS (6)
  - ANAPHYLACTIC REACTION [None]
  - CEREBRAL ARTERY EMBOLISM [None]
  - CIRCULATORY COLLAPSE [None]
  - DISSEMINATED INTRAVASCULAR COAGULATION [None]
  - PYREXIA [None]
  - THROMBOSIS [None]
